FAERS Safety Report 12565589 (Version 1)
Quarter: 2016Q3

REPORT INFORMATION
  Report Type: Spontaneous
  Country: US (occurrence: US)
  Receive Date: 20160718
  Receipt Date: 20160718
  Transmission Date: 20161109
  Serious: No
  Sender: FDA-Public Use
  Company Number: US-BAUSCH-BL-2015-016520

PATIENT
  Age: 86 Year
  Sex: Female
  Weight: 65.83 kg

DRUGS (5)
  1. BESIVANCE [Suspect]
     Active Substance: BESIFLOXACIN
     Indication: EYE INFECTION
     Dosage: 1 DROP IN THE LEFT EYE AS DIRECTED
     Route: 061
     Dates: start: 20150628
  2. ASPIRIN. [Concomitant]
     Active Substance: ASPIRIN
     Indication: ATRIAL FIBRILLATION
     Route: 048
     Dates: end: 201506
  3. SOTALOL. [Concomitant]
     Active Substance: SOTALOL
     Indication: ATRIAL FIBRILLATION
     Route: 048
  4. BESIVANCE [Suspect]
     Active Substance: BESIFLOXACIN
     Indication: PROPHYLAXIS
  5. WARFARIN [Concomitant]
     Active Substance: WARFARIN
     Indication: ATRIAL FIBRILLATION
     Route: 048
     Dates: end: 201506

REACTIONS (4)
  - Eye irritation [Not Recovered/Not Resolved]
  - Eyelid oedema [Not Recovered/Not Resolved]
  - Ocular hyperaemia [Not Recovered/Not Resolved]
  - Eye pain [Not Recovered/Not Resolved]

NARRATIVE: CASE EVENT DATE: 2015
